FAERS Safety Report 14453342 (Version 1)
Quarter: 2018Q1

REPORT INFORMATION
  Report Type: Spontaneous
  Country: BR (occurrence: BR)
  Receive Date: 20180129
  Receipt Date: 20180129
  Transmission Date: 20180509
  Serious: Yes (Other)
  Sender: FDA-Public Use
  Company Number: PHHY2018BR006996

PATIENT
  Sex: Female
  Weight: 92 kg

DRUGS (2)
  1. FORASEQ [Suspect]
     Active Substance: BUDESONIDE\FORMOTEROL FUMARATE
     Dosage: 02 DOSES WHEN NERVOUS
     Route: 055
  2. FORASEQ [Suspect]
     Active Substance: BUDESONIDE\FORMOTEROL FUMARATE
     Indication: CARDIAC ARREST
     Dosage: 1 DF, QD
     Route: 055

REACTIONS (5)
  - Drug dependence [Recovering/Resolving]
  - Product use in unapproved indication [Unknown]
  - Respiratory arrest [Recovering/Resolving]
  - Dyspnoea [Recovering/Resolving]
  - Nervousness [Recovering/Resolving]
